FAERS Safety Report 25622401 (Version 2)
Quarter: 2025Q3

REPORT INFORMATION
  Report Type: Spontaneous
  Country: EU (occurrence: EU)
  Receive Date: 20250730
  Receipt Date: 20250730
  Transmission Date: 20251020
  Serious: Yes (Hospitalization, Other)
  Sender: HILL DERMACEUTICALS, INC.
  Company Number: EU-Hill Dermaceuticals, Inc.-2181507

PATIENT
  Age: 56 Year
  Sex: Male

DRUGS (1)
  1. TOLAK [Suspect]
     Active Substance: FLUOROURACIL
     Indication: Actinic keratosis
     Dates: start: 202404, end: 202405

REACTIONS (5)
  - Pneumonia [Unknown]
  - Asthenia [Not Recovered/Not Resolved]
  - Immunosuppression [Unknown]
  - Lymphadenitis [Not Recovered/Not Resolved]
  - Plasma cell myeloma [Not Recovered/Not Resolved]

NARRATIVE: CASE EVENT DATE: 20240701
